FAERS Safety Report 7607681-X (Version None)
Quarter: 2011Q3

REPORT INFORMATION
  Report Type: 
  Country: None (occurrence: None)
  Receive Date: 20110713
  Receipt Date: 20110512
  Transmission Date: 20111222
  Serious: No
  Sender: FDA-Public Use
  Company Number: PHHY2011JP42416

PATIENT
  Sex: Female

DRUGS (10)
  1. TASIGNA [Suspect]
     Dosage: 400 MG, DAILY
     Route: 048
     Dates: start: 20101229, end: 20110610
  2. LANSOPRAZOLE [Concomitant]
     Dosage: 15 MG, UNK
     Route: 048
     Dates: start: 20110127
  3. SALOBEL [Concomitant]
     Dosage: 200 MG, UNK
     Route: 048
     Dates: start: 20101218
  4. MAGNESIUM SULFATE [Concomitant]
     Dosage: 3000 MG, UNK
  5. CALCIUM POLYSTYRENE SULFONATE [Concomitant]
  6. FAMOTIDINE [Concomitant]
     Dosage: 20 MEQ/KG, UNK
     Route: 048
     Dates: start: 20110120, end: 20110126
  7. TASIGNA [Suspect]
     Indication: CHRONIC MYELOID LEUKAEMIA
     Dosage: 800 MG, DAILY
     Route: 048
     Dates: start: 20101221, end: 20101227
  8. FUROSEMIDE [Concomitant]
     Dosage: 20 MG, UNK
  9. TASIGNA [Suspect]
     Dosage: 800 MG, DAILY
     Route: 048
     Dates: start: 20110111, end: 20110124
  10. TASIGNA [Suspect]
     Dosage: 400 MG, DAILY
     Route: 048
     Dates: start: 20110125

REACTIONS (1)
  - HYPERKALAEMIA [None]
